FAERS Safety Report 5295122-X (Version None)
Quarter: 2007Q2

REPORT INFORMATION
  Report Type: 
  Country: None (occurrence: None)
  Receive Date: 20070412
  Receipt Date: 20070402
  Transmission Date: 20071010
  Serious: Yes (Death)
  Sender: FDA-Public Use
  Company Number: FR-SANOFI-SYNTHELABO-A02200700438

PATIENT
  Age: 80 Year
  Sex: Female

DRUGS (9)
  1. TARDYFERON [Concomitant]
     Indication: DRUG USE FOR UNKNOWN INDICATION
     Dosage: UNK
     Route: 048
     Dates: start: 20050401
  2. PREVISCAN [Suspect]
     Indication: HEART VALVE REPLACEMENT
     Route: 048
     Dates: end: 20061215
  3. PREVISCAN [Suspect]
     Route: 048
     Dates: start: 20061223, end: 20061225
  4. LOVENOX [Suspect]
     Indication: THROMBOSIS PROPHYLAXIS
     Route: 058
     Dates: start: 20061218, end: 20061223
  5. PLAVIX [Suspect]
     Route: 048
     Dates: start: 20061218, end: 20061218
  6. PLAVIX [Suspect]
     Route: 048
     Dates: start: 20061218, end: 20061218
  7. PLAVIX [Suspect]
     Route: 048
     Dates: start: 20061219
  8. PLAVIX [Suspect]
     Route: 048
     Dates: start: 20061219
  9. HEPARIN CHOAY [Suspect]
     Dosage: UNK
     Route: 042
     Dates: start: 20061224

REACTIONS (3)
  - ANAEMIA [None]
  - MUSCLE HAEMORRHAGE [None]
  - RENAL FAILURE ACUTE [None]
